FAERS Safety Report 16757461 (Version 3)
Quarter: 2024Q1

REPORT INFORMATION
  Report Type: Other
  Country: US (occurrence: None)
  Receive Date: 20190830
  Receipt Date: 20240319
  Transmission Date: 20240410
  Serious: Yes (Other)
  Sender: FDA-Public Use
  Company Number: US-ROCHE-2370468

PATIENT
  Age: 24 Year
  Sex: Female
  Weight: 115.77 kg

DRUGS (1)
  1. OCREVUS [Suspect]
     Active Substance: OCRELIZUMAB
     Indication: Relapsing-remitting multiple sclerosis
     Dosage: SECOND INFUSION WAS ON12/SEP/2018
     Route: 042
     Dates: start: 20180829, end: 20190131

REACTIONS (4)
  - Respiratory symptom [Unknown]
  - Respiratory disorder [Recovered/Resolved]
  - Hypersensitivity [Recovered/Resolved]
  - Respiratory symptom [Recovered/Resolved]

NARRATIVE: CASE EVENT DATE: 20190131
